FAERS Safety Report 21951769 (Version 1)
Quarter: 2023Q1

REPORT INFORMATION
  Report Type: Spontaneous
  Country: US (occurrence: None)
  Receive Date: 20230203
  Receipt Date: 20230203
  Transmission Date: 20230417
  Serious: No
  Sender: FDA-Public Use
  Company Number: None

PATIENT
  Age: 43 Year
  Sex: Female
  Weight: 63 kg

DRUGS (4)
  1. OCREVUS [Suspect]
     Active Substance: OCRELIZUMAB
     Indication: Multiple sclerosis
     Route: 042
  2. Acetaminophen 975mg [Concomitant]
  3. DIPHENHYDRAMINE [Concomitant]
     Active Substance: DIPHENHYDRAMINE
  4. Methylprednisolone 100mg [Concomitant]

REACTIONS (4)
  - Throat irritation [None]
  - Infusion related reaction [None]
  - Therapy cessation [None]
  - Nervous system disorder [None]

NARRATIVE: CASE EVENT DATE: 20230202
